FAERS Safety Report 6017531-3 (Version None)
Quarter: 2008Q4

REPORT INFORMATION
  Report Type: 
  Country: None (occurrence: None)
  Receive Date: 20081223
  Receipt Date: 20081218
  Transmission Date: 20090506
  Serious: Yes (Death, Hospitalization)
  Sender: FDA-Public Use
  Company Number: JP-BAYER-200812252BYL

PATIENT
  Age: 71 Year
  Sex: Male
  Weight: 65 kg

DRUGS (8)
  1. NEXAVAR [Suspect]
     Indication: RENAL CELL CARCINOMA STAGE IV
     Dosage: AS USED: 800 MG  UNIT DOSE: 200 MG
     Route: 048
     Dates: start: 20080609, end: 20080622
  2. NEXAVAR [Suspect]
     Dosage: AS USED: 400 MG  UNIT DOSE: 200 MG
     Route: 048
     Dates: start: 20080623, end: 20080701
  3. LUPRAC [Concomitant]
     Dosage: AS USED: 4 MG
     Route: 048
     Dates: start: 20080609, end: 20080702
  4. ARTIST [Concomitant]
     Indication: HYPERTENSION
     Dosage: TOTAL DAILY DOSE: 2.5 MG  UNIT DOSE: 2.5 MG
     Route: 048
     Dates: start: 20080609, end: 20080702
  5. WARFARIN SODIUM [Concomitant]
     Dosage: AS USED: 1.5 MG
     Route: 048
     Dates: start: 20080609, end: 20080702
  6. RIBALL [Concomitant]
     Indication: HYPERURICAEMIA
     Dosage: AS USED: 200 MG  UNIT DOSE: 100 MG
     Route: 048
     Dates: start: 20080609, end: 20080702
  7. ROCALTROL [Concomitant]
     Dosage: AS USED: 0.25 ?G
     Route: 048
     Dates: start: 20080609, end: 20080702
  8. TAGAMET [Concomitant]
     Dosage: AS USED: 400 MG  UNIT DOSE: 100 MG
     Route: 048
     Dates: start: 20080609, end: 20080702

REACTIONS (3)
  - ANOREXIA [None]
  - DYSPHONIA [None]
  - PNEUMONIA [None]
